FAERS Safety Report 8536270-8 (Version None)
Quarter: 2012Q2

REPORT INFORMATION
  Report Type: 
  Country: None (occurrence: None)
  Receive Date: 20120412
  Receipt Date: 20120412
  Transmission Date: 20120825
  Serious: Yes (Other)
  Sender: FDA-Public Use
  Company Number: PHEH2007US09151

PATIENT
  Age: 45 Year
  Sex: Female

DRUGS (14)
  1. AMOXICILLIN [Concomitant]
  2. ELAVIL (AMITRIPTYLINE HYDROCHLORIED) [Concomitant]
  3. DECADRON [Concomitant]
  4. TAMOXIFEN CITRATE [Concomitant]
  5. IBUPROFEN [Concomitant]
  6. ULTRAM [Concomitant]
  7. ZOMETA [Suspect]
     Dosage: , INTRAVENOUS
     Route: 042
  8. RADIATION THERAPY (NO INGREDIENT/SUBSTANCES) [Concomitant]
  9. CLINDAMYCIN [Concomitant]
  10. TAXOTERE [Concomitant]
  11. AREDIA [Suspect]
     Dosage: 90 MG, INTRAVENOUS
     Route: 042
     Dates: start: 20010101
  12. BENADRYL ^ACHE^ (AMMONIUM CHLORIDE, DIPHENHYDRAMINE HYDROCHLORIEDE, ME [Concomitant]
  13. PEPCID [Concomitant]
  14. TAXOL [Concomitant]

REACTIONS (14)
  - SINUS DISORDER [None]
  - PAIN IN JAW [None]
  - ABSCESS DRAINAGE [None]
  - OSTEOMYELITIS CHRONIC [None]
  - OSTEONECROSIS OF JAW [None]
  - RENAL CYST [None]
  - TOOTH EXTRACTION [None]
  - IMPAIRED HEALING [None]
  - INFUSION SITE HAEMORRHAGE [None]
  - FULL BLOOD COUNT ABNORMAL [None]
  - CELLULITIS [None]
  - OEDEMA MUCOSAL [None]
  - SWELLING [None]
  - ENDODONTIC PROCEDURE [None]
